FAERS Safety Report 26008932 (Version 1)
Quarter: 2025Q4

REPORT INFORMATION
  Report Type: Spontaneous
  Country: CH (occurrence: CH)
  Receive Date: 20251106
  Receipt Date: 20251106
  Transmission Date: 20260118
  Serious: Yes (Other)
  Sender: PHARMOBEDIENT CONSULTING, LLC
  Company Number: CH-Pharmobedient-000428

PATIENT
  Age: 66 Year
  Sex: Female
  Weight: 0 kg

DRUGS (3)
  1. CARBOPLATIN [Suspect]
     Active Substance: CARBOPLATIN
     Indication: Cervix carcinoma
     Dosage: SEVEN CYCLE, REDUCED TO 80 %
  2. PACLITAXEL [Suspect]
     Active Substance: PACLITAXEL
     Indication: Cervix carcinoma
  3. BEVACIZUMAB [Concomitant]
     Active Substance: BEVACIZUMAB
     Indication: Cervix carcinoma
     Dosage: THREE INJECTIONS

REACTIONS (3)
  - Pancytopenia [Unknown]
  - Therapy partial responder [Unknown]
  - Neoplasm progression [Unknown]
